FAERS Safety Report 8691950 (Version 2)
Quarter: 2012Q4

REPORT INFORMATION
  Report Type: 
  Country: US (occurrence: US)
  Receive Date: 20120730
  Receipt Date: 20120906
  Transmission Date: 20130627
  Serious: No
  Sender: FDA-Public Use
  Company Number: US-PFIZER INC-2012181452

PATIENT
  Age: 41 Year
  Sex: Female
  Weight: 49.89 kg

DRUGS (5)
  1. VENLAFAXINE HYDROCHLORIDE [Suspect]
     Indication: DEPRESSION
     Dosage: 150 mg, daily
     Dates: start: 201205, end: 2012
  2. VENLAFAXINE HYDROCHLORIDE [Suspect]
     Dosage: 150 mg, 2x/day
     Dates: start: 2012
  3. TOPIRAMATE [Suspect]
     Indication: MIGRAINE
     Dosage: 100 mg, 2x/day
     Dates: start: 2009, end: 20120724
  4. ZYRTEC [Suspect]
     Indication: FEELING HOT
     Dosage: UNK, Once
     Dates: start: 20120718, end: 20120718
  5. CONCERTA [Concomitant]
     Indication: ATTENTION DEFICIT/HYPERACTIVITY DISORDER
     Dosage: 36 mg, daily

REACTIONS (6)
  - Pruritus [Unknown]
  - Skin burning sensation [Unknown]
  - Feeling hot [Unknown]
  - Sweat gland disorder [Unknown]
  - Rash [Unknown]
  - Feeling abnormal [Unknown]
